FAERS Safety Report 4481222-0 (Version None)
Quarter: 2004Q4

REPORT INFORMATION
  Report Type: 
  Country: None (occurrence: None)
  Receive Date: 20040923
  Receipt Date: 20040712
  Transmission Date: 20050328
  Serious: No
  Sender: FDA-Public Use
  Company Number: USA040157292

PATIENT
  Age: 77 Year
  Sex: Female
  Weight: 50 kg

DRUGS (4)
  1. FORTEO [Suspect]
     Indication: OSTEOPOROSIS
     Dosage: 20 UG DAY
     Dates: start: 20040108
  2. NUTROPIN [Concomitant]
  3. XALATAN [Concomitant]
  4. VITAMINS [Concomitant]

REACTIONS (2)
  - BLOOD PRESSURE FLUCTUATION [None]
  - INJECTION SITE HAEMORRHAGE [None]
